FAERS Safety Report 4559716-9 (Version None)
Quarter: 2005Q1

REPORT INFORMATION
  Report Type: 
  Country: None (occurrence: None)
  Receive Date: 20050107
  Receipt Date: 20040429
  Transmission Date: 20050727
  Serious: Yes (Hospitalization)
  Sender: FDA-Public Use
  Company Number: HQWYE657829APR04

PATIENT
  Age: 63 Year
  Sex: Male
  Weight: 171.16 kg

DRUGS (10)
  1. CORDARONE [Suspect]
     Indication: ARRHYTHMIA
     Dosage: 200 MG, ORAL
     Route: 048
     Dates: end: 20040303
  2. GLUCOPHAGE [Concomitant]
  3. ACTOS [Concomitant]
  4. RYTHMOL [Concomitant]
  5. ATACAND [Concomitant]
  6. NORVASC [Concomitant]
  7. SYNTHROID [Concomitant]
  8. GLYNASE [Concomitant]
  9. LANOXIN [Concomitant]
  10. PROZAC [Concomitant]

REACTIONS (2)
  - HEPATIC CIRRHOSIS [None]
  - HEPATIC FAILURE [None]
